FAERS Safety Report 18932262 (Version 4)
Quarter: 2021Q3

REPORT INFORMATION
  Report Type: Report from Study
  Country: US (occurrence: US)
  Receive Date: 20210224
  Receipt Date: 20210924
  Transmission Date: 20211014
  Serious: Yes (Other)
  Sender: FDA-Public Use
  Company Number: US-BIOVITRUM-2021US1819

PATIENT
  Age: 59 Year
  Sex: Male

DRUGS (4)
  1. COLCHICINE. [Suspect]
     Active Substance: COLCHICINE
     Indication: PRODUCT USED FOR UNKNOWN INDICATION
  2. KINERET [Suspect]
     Active Substance: ANAKINRA
     Indication: PERICARDIAL EFFUSION
     Route: 058
     Dates: start: 201904
  3. KINERET [Suspect]
     Active Substance: ANAKINRA
     Indication: PERICARDIAL DISEASE
     Route: 058
  4. KINERET [Suspect]
     Active Substance: ANAKINRA
     Route: 058
     Dates: start: 20190615

REACTIONS (10)
  - Pericardial disease [Unknown]
  - Otitis externa [Unknown]
  - Pericardial effusion [Unknown]
  - COVID-19 [Unknown]
  - Hepatic enzyme increased [Unknown]
  - Off label use [Not Recovered/Not Resolved]
  - Low density lipoprotein increased [Unknown]
  - Condition aggravated [Unknown]
  - Adverse drug reaction [Unknown]
  - Ear infection [Unknown]

NARRATIVE: CASE EVENT DATE: 20190615
